FAERS Safety Report 18435539 (Version 1)
Quarter: 2020Q4

REPORT INFORMATION
  Report Type: Other
  Country: CA (occurrence: CA)
  Receive Date: 20201028
  Receipt Date: 20201028
  Transmission Date: 20210114
  Serious: Yes (Death, Other)
  Sender: FDA-Public Use
  Company Number: CA-ACCORD-206303

PATIENT

DRUGS (20)
  1. GRANULOCYTE COLONY STIMULATING [Suspect]
     Active Substance: GRANULOCYTE COLONY-STIMULATING FACTOR NOS
     Indication: B-CELL LYMPHOMA RECURRENT
     Dosage: AT A DOSE OF 10 MCG/KG
     Route: 065
  2. ARA-C [Suspect]
     Active Substance: CYTARABINE
     Indication: B-CELL LYMPHOMA RECURRENT
     Dosage: UNK
     Route: 042
  3. INTERFERON ALFA-2A [Suspect]
     Active Substance: INTERFERON ALFA-2A
     Indication: B-CELL LYMPHOMA RECURRENT
  4. RITUXIMAB. [Suspect]
     Active Substance: RITUXIMAB
     Indication: B-CELL LYMPHOMA REFRACTORY
     Dosage: 375 MG/M2, Q.WK.
     Route: 042
  5. CISPLATIN. [Suspect]
     Active Substance: CISPLATIN
     Indication: B-CELL LYMPHOMA REFRACTORY
     Route: 042
  6. ETOPOSIDE. [Suspect]
     Active Substance: ETOPOSIDE
     Indication: B-CELL LYMPHOMA REFRACTORY
     Route: 065
  7. BICNU [Suspect]
     Active Substance: CARMUSTINE
     Indication: B-CELL LYMPHOMA RECURRENT
     Dosage: UNK
     Route: 065
  8. VP-16 [Suspect]
     Active Substance: ETOPOSIDE
     Indication: B-CELL LYMPHOMA RECURRENT
     Dosage: 40 MILLIGRAM/SQ. METER, QD
     Route: 065
  9. RITUXIMAB. [Suspect]
     Active Substance: RITUXIMAB
     Indication: PRODUCT USED FOR UNKNOWN INDICATION
     Dosage: 375 MG/M2, FOUR TIMES EVERY WEEK
     Route: 042
  10. METHYLPREDNISOLONE. [Suspect]
     Active Substance: METHYLPREDNISOLONE
     Indication: B-CELL LYMPHOMA REFRACTORY
     Dosage: 500 MG, QD
     Route: 042
  11. VINCRISTINE [Suspect]
     Active Substance: VINCRISTINE
     Indication: B-CELL LYMPHOMA REFRACTORY
     Dosage: 1.4 MILLIGRAM/SQ. METER
     Route: 042
  12. FLUDARABINE/FLUDARABINE PHOSPHATE [Suspect]
     Active Substance: FLUDARABINE PHOSPHATE
     Indication: B-CELL LYMPHOMA RECURRENT
  13. CYCLOPHOSPHAMIDE/CYCLOPHOSPHAMIDE MONOHYDRATE [Suspect]
     Active Substance: CYCLOPHOSPHAMIDE
     Indication: B-CELL LYMPHOMA RECURRENT
     Dosage: UNK
     Route: 065
  14. CYTARABINE/CYTARABINE HYDROCHLORIDE/CYTARABINE OCFOSFATE [Suspect]
     Active Substance: CYTARABINE
     Indication: B-CELL LYMPHOMA REFRACTORY
     Dosage: 2000 MG/M2, UNK
     Route: 042
  15. DOXORUBICIN [Suspect]
     Active Substance: DOXORUBICIN
     Indication: B-CELL LYMPHOMA RECURRENT
  16. DEXAMETHASONE. [Suspect]
     Active Substance: DEXAMETHASONE
     Indication: B-CELL LYMPHOMA RECURRENT
  17. CARMUSTINE. [Suspect]
     Active Substance: CARMUSTINE
     Indication: B-CELL LYMPHOMA RECURRENT
  18. RITUXIMAB. [Suspect]
     Active Substance: RITUXIMAB
     Indication: B-CELL LYMPHOMA RECURRENT
     Dosage: 375 MG/M2, UNK
     Route: 042
  19. PREDNISONE. [Suspect]
     Active Substance: PREDNISONE
     Indication: B-CELL LYMPHOMA RECURRENT
  20. CISPLATIN. [Suspect]
     Active Substance: CISPLATIN
     Indication: B-CELL LYMPHOMA RECURRENT
     Dosage: 100 MG/M2, UNK
     Route: 042

REACTIONS (25)
  - Hypogammaglobulinaemia [Fatal]
  - Haemolytic uraemic syndrome [Fatal]
  - Myelodysplastic syndrome [Fatal]
  - Squamous cell carcinoma [Fatal]
  - Respiratory disorder [Fatal]
  - Fatigue [Fatal]
  - Second primary malignancy [Fatal]
  - Cytopenia [Fatal]
  - Depression [Fatal]
  - Infection [Fatal]
  - Fungal infection [Fatal]
  - Thyroid cancer [Fatal]
  - Acute lymphocytic leukaemia [Fatal]
  - Acute myeloid leukaemia [Fatal]
  - Atrial fibrillation [Fatal]
  - Colorectal adenocarcinoma [Fatal]
  - Non-small cell lung cancer [Fatal]
  - Interstitial lung disease [Fatal]
  - Herpes zoster [Fatal]
  - Basal cell carcinoma [Fatal]
  - Diffuse large B-cell lymphoma [Fatal]
  - Pulmonary fibrosis [Fatal]
  - Thrombocytopenic purpura [Fatal]
  - Respiratory tract infection [Fatal]
  - Bronchitis [Fatal]
